FAERS Safety Report 4294521-2 (Version None)
Quarter: 2004Q1

REPORT INFORMATION
  Report Type: 
  Country: None (occurrence: None)
  Receive Date: 20040211
  Receipt Date: 20040127
  Transmission Date: 20041129
  Serious: Yes (Other)
  Sender: FDA-Public Use
  Company Number: B0321741A

PATIENT

DRUGS (2)
  1. AMOXIL [Suspect]
     Dosage: TRANSPLACENTARY
     Route: 064
  2. AMOXIL [Suspect]
     Dosage: ORAL
     Route: 048

REACTIONS (3)
  - MATERNAL DRUGS AFFECTING FOETUS [None]
  - MORGANELLA INFECTION [None]
  - SEPSIS NEONATAL [None]
